FAERS Safety Report 5148025-5 (Version None)
Quarter: 2006Q4

REPORT INFORMATION
  Report Type: 
  Country: None (occurrence: None)
  Receive Date: 20061110
  Receipt Date: 20060731
  Transmission Date: 20070319
  Serious: Yes (Other)
  Sender: FDA-Public Use
  Company Number: FR-GLAXOSMITHKLINE-B0434550A

PATIENT
  Age: 53 Year
  Sex: Male
  Weight: 62.8 kg

DRUGS (4)
  1. ZIAGEN [Suspect]
     Indication: HIV INFECTION
     Dosage: 2TAB PER DAY
     Route: 048
     Dates: start: 20060711, end: 20060801
  2. NORVIR [Suspect]
     Indication: HIV INFECTION
     Dosage: 2TAB PER DAY
     Route: 048
     Dates: start: 20060711
  3. INVIRASE [Suspect]
     Indication: HIV INFECTION
     Dosage: 2TAB TWICE PER DAY
     Route: 048
     Dates: start: 20060711
  4. VIDEX [Suspect]
     Indication: HIV INFECTION
     Route: 065

REACTIONS (12)
  - ARTHRALGIA [None]
  - ASTHENIA [None]
  - BLOOD ALKALINE PHOSPHATASE INCREASED [None]
  - CYTOLYTIC HEPATITIS [None]
  - GAMMA-GLUTAMYLTRANSFERASE INCREASED [None]
  - HEADACHE [None]
  - HYPERSENSITIVITY [None]
  - INITIAL INSOMNIA [None]
  - INSOMNIA [None]
  - MYALGIA [None]
  - PRURITUS [None]
  - TRANSAMINASES INCREASED [None]
